FAERS Safety Report 8315174-X (Version None)
Quarter: 2012Q2

REPORT INFORMATION
  Report Type: 
  Country: None (occurrence: None)
  Receive Date: 20120426
  Receipt Date: 20120416
  Transmission Date: 20120825
  Serious: Yes (Death)
  Sender: FDA-Public Use
  Company Number: JP-GLAXOSMITHKLINE-B0768556A

PATIENT
  Age: 57 Year
  Sex: Female
  Weight: 48.2 kg

DRUGS (7)
  1. GEMCITABINE [Concomitant]
     Route: 065
  2. CARBOPLATIN + PACLITAXEL [Concomitant]
     Route: 065
  3. RAMELTEON [Concomitant]
     Dosage: .1MG PER DAY
     Route: 048
     Dates: start: 20111129, end: 20111203
  4. DOXIL [Concomitant]
     Route: 065
  5. PICIBANIL [Concomitant]
     Route: 065
  6. PACLITAXEL [Concomitant]
     Route: 065
  7. HYCAMTIN [Suspect]
     Indication: OVARIAN CANCER RECURRENT
     Dosage: .8MGM2 PER DAY
     Route: 042
     Dates: start: 20111128, end: 20111202

REACTIONS (14)
  - FEBRILE NEUTROPENIA [None]
  - MALAISE [None]
  - NEUTROPHIL COUNT DECREASED [None]
  - PAINFUL RESPIRATION [None]
  - ANAEMIA [None]
  - WHITE BLOOD CELL COUNT DECREASED [None]
  - RED BLOOD CELL COUNT DECREASED [None]
  - NAUSEA [None]
  - FATIGUE [None]
  - PYREXIA [None]
  - HEADACHE [None]
  - DECREASED APPETITE [None]
  - BONE MARROW FAILURE [None]
  - PLATELET COUNT DECREASED [None]
